FAERS Safety Report 5071327-8 (Version None)
Quarter: 2006Q3

REPORT INFORMATION
  Report Type: 
  Country: None (occurrence: None)
  Receive Date: 20060804
  Receipt Date: 20051102
  Transmission Date: 20061208
  Serious: No
  Sender: FDA-Public Use
  Company Number: US-AMGEN-US156521

PATIENT
  Age: 83 Year
  Sex: Female

DRUGS (13)
  1. ARANESP [Suspect]
     Indication: ANAEMIA
     Dates: start: 20040805
  2. FOSAMAX [Concomitant]
  3. DIOVAN [Concomitant]
  4. VERAPAMIL [Concomitant]
  5. ALLOPURINOL [Concomitant]
  6. LOVASTATIN [Concomitant]
  7. NEXIUM [Concomitant]
  8. RANITIDINE [Concomitant]
  9. ALBUTEROL [Concomitant]
  10. ATROVENT [Concomitant]
  11. SPIRIVA [Concomitant]
  12. HUMIBID - SLOW RELEASE [Concomitant]
  13. THEOPHYLLINE [Concomitant]

REACTIONS (2)
  - BLOOD PRESSURE INCREASED [None]
  - EPISTAXIS [None]
